FAERS Safety Report 20408240 (Version 1)
Quarter: 2022Q1

REPORT INFORMATION
  Report Type: Report from Study
  Country: RO (occurrence: RO)
  Receive Date: 20220201
  Receipt Date: 20220201
  Transmission Date: 20220423
  Serious: Yes (Hospitalization, Other)
  Sender: FDA-Public Use
  Company Number: RO-ABBVIE-22K-135-4257403-00

PATIENT
  Age: 66 Year
  Sex: Male

DRUGS (11)
  1. HUMIRA [Suspect]
     Active Substance: ADALIMUMAB
     Indication: Psoriasis
     Route: 058
     Dates: start: 20120415, end: 20211227
  2. METFORMIN HYDROCHLORIDE [Concomitant]
     Active Substance: METFORMIN HYDROCHLORIDE
     Indication: Diabetes mellitus
     Dosage: PRIOR TO ABBVIE THERAPY
     Route: 048
  3. DUPLECOR [Concomitant]
     Indication: Hypertension
     Route: 048
     Dates: start: 2020
  4. MOXONIDINE [Concomitant]
     Active Substance: MOXONIDINE
     Indication: Hypertension
     Route: 048
     Dates: start: 2020
  5. IRBESARTAN [Concomitant]
     Active Substance: IRBESARTAN
     Indication: Hypertension
     Route: 048
     Dates: start: 2020
  6. XYZAL [Concomitant]
     Active Substance: LEVOCETIRIZINE DIHYDROCHLORIDE
     Indication: Product used for unknown indication
     Route: 048
     Dates: start: 2012
  7. NOLET [Concomitant]
     Indication: Hypertension
     Dosage: 2-3 YEARS PRIOR THE REPORT
     Route: 048
  8. PENTOXIFYLLINE [Concomitant]
     Active Substance: PENTOXIFYLLINE
     Indication: Poor peripheral circulation
     Dosage: 2-3 YEARS PRIOR THE REPORT
     Route: 048
  9. SULODEXIDE [Concomitant]
     Active Substance: SULODEXIDE
     Indication: Poor peripheral circulation
     Route: 048
     Dates: start: 202112
  10. TIOLIN [Concomitant]
     Indication: Diabetes mellitus
     Route: 048
     Dates: start: 2020
  11. SILYMARINE [Concomitant]
     Indication: Liver disorder
     Dosage: A FEW MONTHS PRIOR THE REPORT
     Route: 048
     Dates: start: 2021

REACTIONS (8)
  - Coma [Recovered/Resolved]
  - Areflexia [Not Recovered/Not Resolved]
  - Bacterial infection [Not Recovered/Not Resolved]
  - Urinary incontinence [Not Recovered/Not Resolved]
  - Diabetic neuropathy [Not Recovered/Not Resolved]
  - Gout [Not Recovered/Not Resolved]
  - Prostatic disorder [Not Recovered/Not Resolved]
  - Areflexia [Unknown]

NARRATIVE: CASE EVENT DATE: 20140101
